FAERS Safety Report 16748992 (Version 2)
Quarter: 2025Q2

REPORT INFORMATION
  Report Type: Spontaneous
  Country: CA (occurrence: CA)
  Receive Date: 20190828
  Receipt Date: 20250624
  Transmission Date: 20250717
  Serious: Yes (Life-Threatening, Other)
  Sender: AUROBINDO
  Company Number: CA-AUROBINDO-AUR-APL-2019-055310

PATIENT
  Sex: Male

DRUGS (6)
  1. FLECAINIDE [Suspect]
     Active Substance: FLECAINIDE
     Indication: Atrial tachycardia
     Route: 065
  2. FLECAINIDE [Suspect]
     Active Substance: FLECAINIDE
     Indication: Cardiogenic shock
  3. FLECAINIDE [Suspect]
     Active Substance: FLECAINIDE
     Indication: Ventricular tachycardia
  4. NADOLOL [Suspect]
     Active Substance: NADOLOL
     Indication: Atrial tachycardia
     Route: 065
  5. NADOLOL [Suspect]
     Active Substance: NADOLOL
     Indication: Cardiogenic shock
  6. NADOLOL [Suspect]
     Active Substance: NADOLOL
     Indication: Ventricular tachycardia

REACTIONS (1)
  - Drug ineffective [Recovering/Resolving]
